FAERS Safety Report 6684966-5 (Version None)
Quarter: 2010Q2

REPORT INFORMATION
  Report Type: 
  Country: None (occurrence: None)
  Receive Date: 20100416
  Receipt Date: 20100408
  Transmission Date: 20101027
  Serious: Yes (Other)
  Sender: FDA-Public Use
  Company Number: B0647145A

PATIENT
  Sex: Female

DRUGS (1)
  1. NIQUITIN [Suspect]
     Route: 065

REACTIONS (5)
  - BURNING SENSATION [None]
  - DEPENDENCE [None]
  - INTENTIONAL DRUG MISUSE [None]
  - PARAESTHESIA [None]
  - RESTLESS LEGS SYNDROME [None]
